FAERS Safety Report 7852505-9 (Version None)
Quarter: 2011Q3

REPORT INFORMATION
  Report Type: 
  Country: None (occurrence: None)
  Receive Date: 20110906
  Receipt Date: 20110621
  Transmission Date: 20111222
  Serious: No
  Sender: FDA-Public Use
  Company Number: 201105038

PATIENT
  Age: 68 Year
  Sex: Female

DRUGS (3)
  1. XIAFLEX [Suspect]
     Indication: DUPUYTREN'S CONTRACTURE
     Dosage: 1 IN 1 D, INTRALESIONAL
     Route: 026
     Dates: start: 20110505, end: 20110505
  2. IBUPROFEN [Concomitant]
  3. ELAVIL [Concomitant]

REACTIONS (3)
  - ECCHYMOSIS [None]
  - LYMPHANGITIS [None]
  - OEDEMA PERIPHERAL [None]
